FAERS Safety Report 20356834 (Version 1)
Quarter: 2022Q1

REPORT INFORMATION
  Report Type: Spontaneous
  Country: PL (occurrence: PL)
  Receive Date: 20220120
  Receipt Date: 20220120
  Transmission Date: 20220423
  Serious: Yes (Hospitalization)
  Sender: FDA-Public Use
  Company Number: PL-BAYER-2022A005431

PATIENT
  Age: 8 Year
  Sex: Male

DRUGS (2)
  1. NAPROXEN SODIUM [Suspect]
     Active Substance: NAPROXEN SODIUM
     Indication: Pyrexia
  2. AMOXICILLIN [Suspect]
     Active Substance: AMOXICILLIN
     Indication: Pyrexia

REACTIONS (32)
  - Acute disseminated encephalomyelitis [Recovered/Resolved]
  - Visual impairment [Recovered/Resolved]
  - Papilloedema [Recovered/Resolved]
  - Condition aggravated [Recovered/Resolved]
  - Optic nerve disorder [Recovered/Resolved]
  - Gait disturbance [Recovered/Resolved]
  - Decreased appetite [Recovered/Resolved]
  - Asthenia [Recovered/Resolved]
  - Circulatory collapse [Recovered/Resolved]
  - Dysarthria [Recovered/Resolved]
  - Balance disorder [Recovered/Resolved]
  - Urinary retention [Recovered/Resolved]
  - Constipation [Recovered/Resolved]
  - Abnormal behaviour [Recovered/Resolved]
  - Mood altered [Recovered/Resolved]
  - Anxiety [Recovered/Resolved]
  - Fear [Recovered/Resolved]
  - Apathy [Recovered/Resolved]
  - Agitation [Recovered/Resolved]
  - Aggression [Recovered/Resolved]
  - Heart rate increased [Recovered/Resolved]
  - Body temperature increased [Recovered/Resolved]
  - Emotional disorder [Recovered/Resolved]
  - Hypotonia [Recovered/Resolved]
  - Meningeal disorder [Recovered/Resolved]
  - Tremor [Recovered/Resolved]
  - Dysmetria [Recovered/Resolved]
  - Gait disturbance [Recovered/Resolved]
  - Demyelination [Recovered/Resolved]
  - Protein total increased [Recovered/Resolved]
  - Blood glucose decreased [Recovered/Resolved]
  - Optic neuritis [Recovered/Resolved]
